FAERS Safety Report 10169379 (Version 1)
Quarter: 2014Q2

REPORT INFORMATION
  Report Type: Spontaneous
  Country: US (occurrence: US)
  Receive Date: 20140513
  Receipt Date: 20140513
  Transmission Date: 20141212
  Serious: No
  Sender: FDA-Public Use
  Company Number: US-ENDO PHARMACEUTICALS INC.-PERD20130006

PATIENT
  Sex: Female
  Weight: 52.21 kg

DRUGS (2)
  1. PERCODAN [Suspect]
     Indication: FIBROMYALGIA
     Dosage: UNK
     Route: 048
  2. PERCODAN [Suspect]
     Indication: BACK PAIN

REACTIONS (3)
  - Migraine [Not Recovered/Not Resolved]
  - Expired product administered [Not Recovered/Not Resolved]
  - Overdose [Not Recovered/Not Resolved]
